FAERS Safety Report 20477896 (Version 2)
Quarter: 2022Q2

REPORT INFORMATION
  Report Type: Report from Study
  Country: DE (occurrence: DE)
  Receive Date: 20220216
  Receipt Date: 20220520
  Transmission Date: 20220721
  Serious: Yes (Death, Hospitalization)
  Sender: FDA-Public Use
  Company Number: DE-BIOGEN-2022BI01095456

PATIENT
  Age: 75 Year
  Sex: Male

DRUGS (1)
  1. TECFIDERA [Suspect]
     Active Substance: DIMETHYL FUMARATE
     Indication: Multiple sclerosis
     Dosage: MAINTENANCE DOSE
     Route: 048
     Dates: start: 20181120

REACTIONS (6)
  - Large intestinal haemorrhage [Recovered/Resolved]
  - Respiratory distress [Fatal]
  - Pneumonia [Recovered/Resolved]
  - Penis disorder [Recovered/Resolved]
  - Wound dehiscence [Unknown]
  - Post procedural inflammation [Unknown]

NARRATIVE: CASE EVENT DATE: 20220201
